FAERS Safety Report 9008536 (Version 2)
Quarter: 2013Q1

REPORT INFORMATION
  Report Type: Report from Study
  Country: JP (occurrence: JP)
  Receive Date: 20130111
  Receipt Date: 20130312
  Transmission Date: 20140127
  Serious: Yes (Death)
  Sender: FDA-Public Use
  Company Number: JP-NAPPMUNDI-GBR-2012-0012522

PATIENT
  Sex: Female

DRUGS (11)
  1. OXYCODONE HCL PR TABLET [Suspect]
     Indication: CANCER PAIN
     Dosage: 60 MG, DAILY
     Route: 048
     Dates: start: 20120405, end: 20120405
  2. OXYCODONE HCL PR TABLET [Suspect]
     Dosage: 40 MG, DAILY
     Route: 048
     Dates: start: 20120308, end: 20120404
  3. OXYCODONE HCL IR POWDER 0.5% [Suspect]
     Indication: CANCER PAIN
     Dosage: 15 MG, DAILY
     Route: 048
     Dates: start: 20120405, end: 20120405
  4. OXYCODONE HCL IR POWDER 0.5% [Suspect]
     Dosage: 10 MG, DAILY
     Route: 048
     Dates: start: 20120308, end: 20120405
  5. LOXONIN [Concomitant]
     Indication: CANCER PAIN
     Dosage: UNK
     Route: 048
     Dates: start: 20120314, end: 20120405
  6. XELODA [Concomitant]
     Indication: BREAST CANCER
     Dosage: UNK
     Route: 048
     Dates: start: 20120224, end: 20120329
  7. XELODA [Concomitant]
     Indication: METASTASES TO PELVIS
  8. XELODA [Concomitant]
     Indication: METASTASIS
  9. HERCEPTIN [Concomitant]
     Indication: BREAST CANCER
     Dosage: UNK
     Route: 065
     Dates: start: 20110303, end: 20120329
  10. HERCEPTIN [Concomitant]
     Indication: METASTASES TO PELVIS
  11. HERCEPTIN [Concomitant]
     Indication: METASTASIS

REACTIONS (1)
  - Malignant neoplasm progression [Fatal]
